FAERS Safety Report 10736714 (Version 1)
Quarter: 2015Q1

REPORT INFORMATION
  Report Type: Spontaneous
  Country: US (occurrence: None)
  Receive Date: 20150122
  Receipt Date: 20150122
  Transmission Date: 20150721
  Serious: Yes (Disabling)
  Sender: FDA-Public Use
  Company Number: None

PATIENT
  Age: 41 Year
  Sex: Male
  Weight: 113.4 kg

DRUGS (11)
  1. EFFEXOR [Concomitant]
     Active Substance: VENLAFAXINE HYDROCHLORIDE
  2. OMEPRAZOL [Concomitant]
     Active Substance: OMEPRAZOLE
  3. BACLOFEN. [Concomitant]
     Active Substance: BACLOFEN
  4. MS CONTIN [Concomitant]
     Active Substance: MORPHINE SULFATE
  5. TESTIM [Concomitant]
     Active Substance: TESTOSTERONE
  6. AMBIEN [Concomitant]
     Active Substance: ZOLPIDEM TARTRATE
  7. ASPIRIN (ECOTRIN) [Concomitant]
  8. MORPHINE [Concomitant]
     Active Substance: MORPHINE
  9. CIPRO [Suspect]
     Active Substance: CIPROFLOXACIN HYDROCHLORIDE
     Indication: PYELONEPHRITIS ACUTE
     Dosage: BY IV  4X DAILY ALSO BY MOUTH
     Route: 042
     Dates: start: 20030915, end: 20030921
  10. TRAZODONE [Concomitant]
     Active Substance: TRAZODONE HYDROCHLORIDE
  11. LYRICA [Concomitant]
     Active Substance: PREGABALIN

REACTIONS (8)
  - Sensory loss [None]
  - Pain in extremity [None]
  - Neuralgia [None]
  - Pain [None]
  - Hypoaesthesia [None]
  - Suicidal ideation [None]
  - Muscular weakness [None]
  - Coordination abnormal [None]

NARRATIVE: CASE EVENT DATE: 20030901
